FAERS Safety Report 9752080 (Version 4)
Quarter: 2014Q1

REPORT INFORMATION
  Report Type: Spontaneous
  Country: CH (occurrence: CH)
  Receive Date: 20131213
  Receipt Date: 20140219
  Transmission Date: 20141002
  Serious: Yes (Other)
  Sender: FDA-Public Use
  Company Number: PHHY2013CH143005

PATIENT
  Sex: Male

DRUGS (2)
  1. TOBI PODHALER [Suspect]
     Indication: PSEUDOMONAS INFECTION
     Dosage: 28 MG, BID
     Dates: start: 201209
  2. BACTRIM [Concomitant]
     Dosage: UNK

REACTIONS (3)
  - Alcaligenes infection [Unknown]
  - Stenotrophomonas infection [Unknown]
  - Cough [Recovered/Resolved]
